FAERS Safety Report 9032955 (Version 2)
Quarter: 2013Q1

REPORT INFORMATION
  Report Type: Spontaneous
  Country: US (occurrence: US)
  Receive Date: 20130128
  Receipt Date: 20130326
  Transmission Date: 20140127
  Serious: Yes (Hospitalization)
  Sender: FDA-Public Use
  Company Number: US-JNJFOC-20121103941

PATIENT
  Age: 7 None
  Sex: Female
  Weight: 32.5 kg

DRUGS (6)
  1. REMICADE [Suspect]
     Indication: CROHN^S DISEASE
     Route: 042
     Dates: start: 20121105, end: 20121105
  2. REMICADE [Suspect]
     Indication: CROHN^S DISEASE
     Route: 042
     Dates: start: 20121022
  3. FOLIC ACID [Concomitant]
     Indication: CROHN^S DISEASE
     Route: 065
     Dates: start: 2010, end: 2012
  4. AZULFIDINE [Concomitant]
     Indication: CROHN^S DISEASE
     Route: 065
     Dates: start: 2010, end: 2012
  5. PRELONE [Concomitant]
     Indication: CROHN^S DISEASE
     Dosage: INTERMITTENTLY
     Route: 065
     Dates: start: 2010
  6. ALL OTHER THERAPEUTIC PRODUCTS [Concomitant]
     Indication: CROHN^S DISEASE
     Route: 065

REACTIONS (4)
  - Serum sickness [Recovered/Resolved]
  - Weight bearing difficulty [Recovered/Resolved]
  - Pain [Recovered/Resolved]
  - Arthralgia [Recovered/Resolved]
